FAERS Safety Report 7999209-X (Version None)
Quarter: 2011Q4

REPORT INFORMATION
  Report Type: 
  Country: None (occurrence: None)
  Receive Date: 20111221
  Receipt Date: 20111215
  Transmission Date: 20120403
  Serious: No
  Sender: FDA-Public Use
  Company Number: US-B.I. PHARMACEUTICALS,INC./RIDGEFIELD-2011-BP-28273BP

PATIENT
  Sex: Male

DRUGS (11)
  1. EPZICOM [Concomitant]
     Indication: ANTIVIRAL TREATMENT
  2. NORVIR [Concomitant]
     Indication: ANTIVIRAL TREATMENT
  3. WELLBUTRIN [Concomitant]
     Indication: DEPRESSION
  4. SYNTHROID [Concomitant]
     Indication: HYPOTHYROIDISM
  5. ACETAMINOPHEN [Concomitant]
     Indication: HEADACHE
  6. PANTOPRAZOLE [Concomitant]
     Indication: GASTROOESOPHAGEAL REFLUX DISEASE
  7. METOPROLOL TARTRATE [Concomitant]
     Indication: HYPERTENSION
  8. REYATAZ [Concomitant]
     Indication: ANTIVIRAL TREATMENT
  9. FINASTERIDE [Concomitant]
     Indication: PROSTATOMEGALY
  10. PRADAXA [Suspect]
     Indication: ATRIAL FIBRILLATION
     Dosage: 300 MG
     Route: 048
     Dates: start: 20111115
  11. ZOFRAN [Concomitant]
     Indication: VOMITING

REACTIONS (4)
  - VOMITING [None]
  - DIZZINESS [None]
  - SWELLING FACE [None]
  - HEADACHE [None]
